FAERS Safety Report 7141561-1 (Version None)
Quarter: 2010Q4

REPORT INFORMATION
  Report Type: 
  Country: None (occurrence: None)
  Receive Date: 20101207
  Receipt Date: 20101123
  Transmission Date: 20110411
  Serious: Yes (Other)
  Sender: FDA-Public Use
  Company Number: PHHY2010US79549

PATIENT
  Age: 69 Year
  Sex: Female

DRUGS (10)
  1. DICLOFENAC [Suspect]
  2. RISENDRONATE [Concomitant]
  3. ALBUTEROL [Concomitant]
  4. ASPIRIN [Concomitant]
  5. TIOTROPIUM [Concomitant]
  6. FLUTICASONE /SALMETEROL [Concomitant]
  7. EZETIMIBE/SIMVASTATIN [Concomitant]
  8. OMEPRAZOLE [Concomitant]
  9. CALCIUM [Concomitant]
  10. VITAMIN D [Concomitant]

REACTIONS (9)
  - ALKAPTONURIA [None]
  - ANTINUCLEAR ANTIBODY INCREASED [None]
  - INTERVERTEBRAL DISC SPACE NARROWING [None]
  - JOINT ANKYLOSIS [None]
  - MACULE [None]
  - OSTEOSCLEROSIS [None]
  - PAIN [None]
  - PIGMENTATION DISORDER [None]
  - SCLERAL DISCOLOURATION [None]
